FAERS Safety Report 11357493 (Version 1)
Quarter: 2015Q3

REPORT INFORMATION
  Report Type: Spontaneous
  Country: US (occurrence: US)
  Receive Date: 20150803
  Receipt Date: 20150803
  Transmission Date: 20151125
  Serious: No
  Sender: FDA-Public Use
  Company Number: US-ELI_LILLY_AND_COMPANY-US201403003009

PATIENT
  Sex: Male
  Weight: 99.77 kg

DRUGS (3)
  1. STRATTERA [Suspect]
     Active Substance: ATOMOXETINE HYDROCHLORIDE
     Dosage: 25 MG, QD
     Route: 048
     Dates: start: 20110504
  2. STRATTERA [Suspect]
     Active Substance: ATOMOXETINE HYDROCHLORIDE
     Indication: WEIGHT CONTROL
     Dosage: 25 MG, QD
     Route: 048
     Dates: start: 20090125, end: 20101130
  3. OLANZAPINE. [Concomitant]
     Active Substance: OLANZAPINE
     Dosage: 5 MG, UNK

REACTIONS (4)
  - Urinary incontinence [Recovered/Resolved]
  - Urinary hesitation [Recovered/Resolved]
  - Pollakiuria [Unknown]
  - Off label use [Unknown]

NARRATIVE: CASE EVENT DATE: 20091118
